FAERS Safety Report 5954611-2 (Version None)
Quarter: 2008Q4

REPORT INFORMATION
  Report Type: 
  Country: None (occurrence: None)
  Receive Date: 20081112
  Receipt Date: 20081104
  Transmission Date: 20090506
  Serious: Yes (Death, Other)
  Sender: FDA-Public Use
  Company Number: SPV1-2008-02430

PATIENT
  Age: 12 Year
  Sex: Male
  Weight: 26 kg

DRUGS (1)
  1. ELAPRASE [Suspect]
     Indication: MUCOPOLYSACCHARIDOSIS II
     Dosage: 12 MG, 1X/WEEK, IV DRIP
     Route: 041
     Dates: end: 20081029

REACTIONS (2)
  - ACUTE RESPIRATORY FAILURE [None]
  - CARDIAC ARREST [None]
